FAERS Safety Report 7737507-5 (Version None)
Quarter: 2011Q3

REPORT INFORMATION
  Report Type: 
  Country: None (occurrence: None)
  Receive Date: 20110908
  Receipt Date: 20110901
  Transmission Date: 20111222
  Serious: Yes (Other)
  Sender: FDA-Public Use
  Company Number: DE-GLAXOSMITHKLINE-D0072577A

PATIENT
  Age: 66 Year
  Sex: Male

DRUGS (4)
  1. LAMICTAL [Suspect]
     Route: 048
  2. BACLOFEN [Suspect]
     Route: 048
  3. LORAZEPAM [Suspect]
     Indication: CONVULSION
     Route: 048
  4. LYRICA [Suspect]
     Dosage: 25MG THREE TIMES PER DAY
     Route: 048

REACTIONS (4)
  - DRUG INTERACTION [None]
  - RASH [None]
  - SLOW RESPONSE TO STIMULI [None]
  - MEMORY IMPAIRMENT [None]
